FAERS Safety Report 5020768-3 (Version None)
Quarter: 2006Q2

REPORT INFORMATION
  Report Type: 
  Country: None (occurrence: None)
  Receive Date: 20060608
  Receipt Date: 20060530
  Transmission Date: 20061013
  Serious: Yes (Hospitalization)
  Sender: FDA-Public Use
  Company Number: US-JNJFOC-20060401269

PATIENT
  Sex: Female
  Weight: 133.81 kg

DRUGS (9)
  1. REMICADE [Suspect]
     Route: 042
  2. REMICADE [Suspect]
     Indication: CROHN'S DISEASE
     Route: 042
  3. SULFASALAZINE [Concomitant]
  4. ZOVIRAX [Concomitant]
  5. CYMBALTA [Concomitant]
  6. VYTORIN [Concomitant]
  7. XANAX [Concomitant]
  8. ULTRAM [Concomitant]
  9. FLEXERIL [Concomitant]

REACTIONS (10)
  - ARTHRALGIA [None]
  - BLOOD PRESSURE INCREASED [None]
  - BRONCHITIS [None]
  - CHEST DISCOMFORT [None]
  - FEELING ABNORMAL [None]
  - FLUSHING [None]
  - INFUSION RELATED REACTION [None]
  - PAIN IN EXTREMITY [None]
  - PNEUMONIA [None]
  - TACHYPNOEA [None]
